FAERS Safety Report 10748397 (Version 2)
Quarter: 2015Q2

REPORT INFORMATION
  Report Type: Spontaneous
  Country: US (occurrence: None)
  Receive Date: 20150120
  Receipt Date: 20150420
  Transmission Date: 20150821
  Serious: No
  Sender: FDA-Public Use
  Company Number: AEGR000995

PATIENT
  Age: 67 Year
  Sex: Female
  Weight: 60.8 kg

DRUGS (11)
  1. AMLODIPINE (AMLODIPINE BESILATE) [Concomitant]
  2. JUXTAPID [Suspect]
     Active Substance: LOMITAPIDE MESYLATE
     Indication: TYPE IIA HYPERLIPIDAEMIA
     Route: 048
     Dates: start: 20141130, end: 20150121
  3. ASPIRIN (ACETYLSALICYLIC ACID) [Concomitant]
     Active Substance: ASPIRIN
  4. OMEGA 3 6 9 (OMEGA 9 FATTY ACIDS, OMEGA-3 FATTY ACIDS, OMEGA-6 FATTY ACIDS) [Concomitant]
  5. MULTIVITAMIN (VITAMINS NOS) [Concomitant]
     Active Substance: VITAMINS
  6. NORVASC [Concomitant]
     Active Substance: AMLODIPINE BESYLATE
  7. VITAMIN B12 [Concomitant]
     Active Substance: CYANOCOBALAMIN
  8. VITAMIN E (TOCOPHERYL ACETATE) [Concomitant]
  9. DULCOLAX (BISACODYL) [Suspect]
     Active Substance: BISACODYL
     Indication: PRODUCT USED FOR UNKNOWN INDICATION
     Dates: start: 20150123
  10. CALCIUM + D (CALCIUM CARBONATE, COLECALCIFEROL) [Concomitant]
  11. MAGNESIUM (MAGNESIUM) [Concomitant]
     Active Substance: MAGNESIUM

REACTIONS (18)
  - Pruritus [None]
  - Drug dose omission [None]
  - Breast pain [None]
  - Lymphadenopathy [None]
  - Mobility decreased [None]
  - Fatigue [None]
  - Malaise [None]
  - Haemorrhoids [None]
  - Blood pressure decreased [None]
  - Weight decreased [None]
  - Flatulence [None]
  - Hallucination [None]
  - Hypersensitivity [None]
  - Diarrhoea [None]
  - Nausea [None]
  - Rash macular [None]
  - Nasopharyngitis [None]
  - Therapy cessation [None]

NARRATIVE: CASE EVENT DATE: 2014
